FAERS Safety Report 5174779-8 (Version None)
Quarter: 2006Q4

REPORT INFORMATION
  Report Type: 
  Country: None (occurrence: None)
  Receive Date: 20061214
  Receipt Date: 20060611
  Transmission Date: 20070319
  Serious: No
  Sender: FDA-Public Use
  Company Number: US-AMGEN-KDL182676

PATIENT
  Sex: Male

DRUGS (1)
  1. ENBREL [Suspect]
     Indication: RHEUMATOID ARTHRITIS
     Route: 058
     Dates: start: 20000701

REACTIONS (5)
  - BURNING SENSATION [None]
  - ERYTHEMA [None]
  - LIMB DISCOMFORT [None]
  - PRURITUS [None]
  - SWELLING [None]
